FAERS Safety Report 25237845 (Version 2)
Quarter: 2025Q2

REPORT INFORMATION
  Report Type: Spontaneous
  Country: US (occurrence: US)
  Receive Date: 20250425
  Receipt Date: 20250429
  Transmission Date: 20250717
  Serious: No
  Sender: SERVIER
  Company Number: US-SERVIER-S25004156

PATIENT

DRUGS (5)
  1. VORANIGO [Suspect]
     Active Substance: VORASIDENIB
     Indication: Oligodendroglioma
     Dosage: 40 MG, QD
     Route: 048
     Dates: start: 20241205, end: 20241219
  2. VORANIGO [Suspect]
     Active Substance: VORASIDENIB
     Dosage: 40 MG, QD
     Route: 048
     Dates: start: 202412, end: 20250113
  3. VORANIGO [Suspect]
     Active Substance: VORASIDENIB
     Dosage: 20 MG, QD
     Route: 048
     Dates: start: 20250122
  4. LEVETIRACETAM [Concomitant]
     Active Substance: LEVETIRACETAM
     Indication: Seizure
     Dosage: 1500 MG, BID
     Route: 065
     Dates: start: 20240816
  5. LACOSAMIDE [Concomitant]
     Active Substance: LACOSAMIDE
     Indication: Seizure
     Dosage: 150 MG, BID
     Route: 065
     Dates: start: 20250205

REACTIONS (2)
  - Alanine aminotransferase increased [Recovered/Resolved]
  - Aspartate aminotransferase increased [Recovered/Resolved]

NARRATIVE: CASE EVENT DATE: 20241219
